FAERS Safety Report 4597779-5 (Version None)
Quarter: 2005Q1

REPORT INFORMATION
  Report Type: 
  Country: None (occurrence: None)
  Receive Date: 20050125
  Receipt Date: 20040902
  Transmission Date: 20050727
  Serious: No
  Sender: FDA-Public Use
  Company Number: USA040977353

PATIENT
  Age: 72 Year
  Sex: Female

DRUGS (10)
  1. FORTEO [Suspect]
     Indication: OSTEOPOROSIS
     Dosage: 20 UG/1 DAY
     Dates: start: 20040811
  2. TOPROL-XL [Concomitant]
  3. ASPIRIN [Concomitant]
  4. MAGNESIUM [Concomitant]
  5. VITAMIN E [Concomitant]
  6. FOLIC ACID [Concomitant]
  7. CALCIUM GLUCONATE [Concomitant]
  8. VITAMIN CAP [Concomitant]
  9. VITAMIN C [Concomitant]
  10. MSM (METHYLSULFONYLMETHANE) [Concomitant]

REACTIONS (7)
  - ASTHENIA [None]
  - DEPRESSION [None]
  - DIZZINESS [None]
  - FATIGUE [None]
  - INJECTION SITE HAEMORRHAGE [None]
  - IRRITABILITY [None]
  - NECK PAIN [None]
